FAERS Safety Report 4341425-2 (Version None)
Quarter: 2004Q2

REPORT INFORMATION
  Report Type: 
  Country: None (occurrence: None)
  Receive Date: 20040413
  Receipt Date: 20040325
  Transmission Date: 20050107
  Serious: Yes (Life-Threatening, Hospitalization, Disabling, Other)
  Sender: FDA-Public Use
  Company Number: WAES 0402FRA00033

PATIENT
  Age: 66 Year
  Sex: Female

DRUGS (9)
  1. COZAAR [Suspect]
     Indication: CARDIAC FAILURE CONGESTIVE
     Dosage: PO
     Route: 048
     Dates: start: 20030314
  2. TAB FLUINDIONE [Suspect]
     Indication: ATRIAL FIBRILLATION
     Dosage: PO
     Route: 048
     Dates: start: 20030322, end: 20030616
  3. TAB FLUINDIONE [Suspect]
     Indication: ATRIAL FIBRILLATION
     Dosage: PO
     Route: 048
     Dates: start: 20030625, end: 20040203
  4. TAB FLUINDIONE [Suspect]
     Indication: ATRIAL FIBRILLATION
     Dosage: PO
     Route: 048
     Dates: start: 20040205, end: 20040207
  5. AMIODARONE HCL [Concomitant]
  6. FUROSEMIDE [Concomitant]
  7. NITROGLYCERIN [Concomitant]
  8. POTASSIUM CHLORIDE [Concomitant]
  9. SPIRONOLACTONE [Concomitant]

REACTIONS (13)
  - COMPUTERISED TOMOGRAM ABNORMAL [None]
  - DISTURBANCE IN ATTENTION [None]
  - DRUG INTERACTION [None]
  - FALL [None]
  - HEAD INJURY [None]
  - HEADACHE [None]
  - HEMIPLEGIA [None]
  - INTERNATIONAL NORMALISED RATIO INCREASED [None]
  - OEDEMA [None]
  - OVERDOSE [None]
  - PROTHROMBIN TIME SHORTENED [None]
  - STRABISMUS [None]
  - SUBDURAL HAEMATOMA [None]
